FAERS Safety Report 4456826-1 (Version None)
Quarter: 2004Q3

REPORT INFORMATION
  Report Type: 
  Country: None (occurrence: None)
  Receive Date: 20040921
  Receipt Date: 20040907
  Transmission Date: 20050211
  Serious: Yes (Hospitalization)
  Sender: FDA-Public Use
  Company Number: A-CH2004-05482

PATIENT
  Age: 85 Year
  Sex: Female

DRUGS (14)
  1. TRACLEER [Suspect]
     Indication: PULMONARY HYPERTENSION
     Dosage: 62.5 MG, 125 MG, BID, ORAL
     Route: 048
     Dates: start: 20040130
  2. INSULIN [Concomitant]
  3. LOVENOX [Concomitant]
  4. KARDEGIC (ACETYLSALICYLIC ACID) [Concomitant]
  5. LASIX [Concomitant]
  6. AMLOR (AMLODIPINE BESYLATE) [Concomitant]
  7. LASIX [Concomitant]
  8. ALDACTONE [Concomitant]
  9. RAMIPRIL [Concomitant]
  10. PREVISCAN (FLUINDIONE) [Concomitant]
  11. PROZAC [Concomitant]
  12. TRAMADOL HCL [Concomitant]
  13. ALISOR (PRAVASTATIN SODIUM) [Concomitant]
  14. OMEPRAZOLE [Concomitant]

REACTIONS (8)
  - CARDIAC FAILURE [None]
  - CHOLELITHIASIS [None]
  - DEEP VEIN THROMBOSIS [None]
  - DYSPNOEA [None]
  - IRON DEFICIENCY ANAEMIA [None]
  - OEDEMA PERIPHERAL [None]
  - PROTEUS INFECTION [None]
  - URINARY TRACT INFECTION [None]
